FAERS Safety Report 15370662 (Version 1)
Quarter: 2018Q3

REPORT INFORMATION
  Report Type: Spontaneous
  Country: CA (occurrence: CA)
  Receive Date: 20180911
  Receipt Date: 20180911
  Transmission Date: 20181010
  Serious: Yes (Other)
  Sender: FDA-Public Use
  Company Number: CA-PFIZER INC-2018364905

PATIENT
  Age: 56 Year
  Sex: Female

DRUGS (6)
  1. TECTA [Suspect]
     Active Substance: PANTOPRAZOLE MAGNESIUM
     Indication: DYSPEPSIA
     Dosage: 40 MG, QD
     Route: 048
  2. ADVIL [MEFENAMIC ACID] [Concomitant]
     Dosage: UNK
     Route: 065
     Dates: start: 2018
  3. FENTANYL. [Concomitant]
     Active Substance: FENTANYL
     Indication: SEDATION
     Dosage: 12.5 MG, UNK
     Route: 042
     Dates: start: 20180703, end: 20180703
  4. DEXILANT [Suspect]
     Active Substance: DEXLANSOPRAZOLE
     Indication: DYSPEPSIA
     Dosage: 60 MG, QD
     Route: 048
  5. PANTOLOC [Suspect]
     Active Substance: PANTOPRAZOLE SODIUM
     Indication: DYSPEPSIA
     Dosage: UNK
     Route: 048
  6. INFLECTRA [INFLIXIMAB] [Concomitant]
     Indication: CROHN^S DISEASE
     Dosage: 500 MG, UNK
     Route: 042

REACTIONS (2)
  - Crohn^s disease [Unknown]
  - Drug ineffective [Unknown]
